FAERS Safety Report 6403501-X (Version None)
Quarter: 2009Q4

REPORT INFORMATION
  Report Type: 
  Country: None (occurrence: None)
  Receive Date: 20091015
  Receipt Date: 20091015
  Transmission Date: 20100525
  Serious: Yes (Hospitalization, Other)
  Sender: FDA-Public Use
  Company Number: None

PATIENT
  Age: 41 Year
  Sex: Female
  Weight: 81.6475 kg

DRUGS (2)
  1. YAZ [Suspect]
     Indication: MENSTRUAL DISORDER
     Dosage: 1 DAY PO
     Route: 048
     Dates: start: 20081001, end: 20091001
  2. YAZ [Suspect]
     Indication: PREMENSTRUAL SYNDROME
     Dosage: 1 DAY PO
     Route: 048
     Dates: start: 20081001, end: 20091001

REACTIONS (3)
  - BACK PAIN [None]
  - CHEST PAIN [None]
  - GALLBLADDER DISORDER [None]
